FAERS Safety Report 13610822 (Version 1)
Quarter: 2017Q2

REPORT INFORMATION
  Report Type: Report from Study
  Country: BR (occurrence: BR)
  Receive Date: 20170605
  Receipt Date: 20170605
  Transmission Date: 20170830
  Serious: Yes (Hospitalization)
  Sender: FDA-Public Use
  Company Number: PHHY2017BR082192

PATIENT
  Sex: Female

DRUGS (4)
  1. ACLASTA [Suspect]
     Active Substance: ZOLEDRONIC ACID
     Indication: PRODUCT USED FOR UNKNOWN INDICATION
     Dosage: Q12MO
     Route: 042
  2. ACLASTA [Suspect]
     Active Substance: ZOLEDRONIC ACID
     Dosage: Q12MO (BETWEEN FEB AND MAR 2017 )
     Route: 042
  3. CALCIUM [Concomitant]
     Active Substance: CALCIUM
     Indication: DIABETES MELLITUS
     Route: 065
  4. VITAMIN D [Concomitant]
     Active Substance: CHOLECALCIFEROL
     Indication: PRODUCT USED FOR UNKNOWN INDICATION
     Route: 065

REACTIONS (12)
  - Malaise [Unknown]
  - Drug ineffective [Unknown]
  - Weight decreased [Unknown]
  - Pain [Unknown]
  - Osteopenia [Unknown]
  - Swelling [Recovering/Resolving]
  - Thirst [Unknown]
  - Hepatic steatosis [Unknown]
  - Lactose intolerance [Unknown]
  - Vitamin D decreased [Unknown]
  - Flatulence [Unknown]
  - Dysuria [Unknown]
